FAERS Safety Report 14365239 (Version 1)
Quarter: 2018Q1

REPORT INFORMATION
  Report Type: Spontaneous
  Country: US (occurrence: US)
  Receive Date: 20180108
  Receipt Date: 20180108
  Transmission Date: 20180509
  Serious: No
  Sender: FDA-Public Use
  Company Number: US-MISSION PHARMACAL COMPANY-2039608

PATIENT
  Age: 45 Year
  Sex: Male

DRUGS (2)
  1. THIOLA [Suspect]
     Active Substance: TIOPRONIN
     Indication: CYSTINURIA
     Route: 065
     Dates: start: 20141218
  2. PAIN MEDICATION [Concomitant]
     Active Substance: UNSPECIFIED INGREDIENT

REACTIONS (18)
  - Pruritus [Unknown]
  - Drug dose omission [Unknown]
  - Abdominal pain upper [Unknown]
  - Parosmia [Unknown]
  - Lung disorder [Unknown]
  - Decreased appetite [Unknown]
  - Asthenia [Unknown]
  - Drug ineffective [Unknown]
  - Rash [Unknown]
  - Flatulence [Unknown]
  - Skin exfoliation [Unknown]
  - Pain [Unknown]
  - Dysphonia [Unknown]
  - Dysgeusia [Unknown]
  - Feeling abnormal [Unknown]
  - Memory impairment [Unknown]
  - Anger [Unknown]
  - Laryngeal oedema [Unknown]
